FAERS Safety Report 9068662 (Version 1)
Quarter: 2013Q1

REPORT INFORMATION
  Report Type: Spontaneous
  Country: US (occurrence: None)
  Receive Date: 20130212
  Receipt Date: 20130212
  Transmission Date: 20140127
  Serious: No
  Sender: FDA-Public Use
  Company Number: None

PATIENT
  Age: 55 Year
  Sex: Female
  Weight: 98.88 kg

DRUGS (1)
  1. MAXIDE [Suspect]
     Indication: HYPERTENSION
     Dosage: 37.5   1 X DAY
     Dates: start: 20130207, end: 20130209

REACTIONS (5)
  - Pain in extremity [None]
  - Pain in extremity [None]
  - Musculoskeletal pain [None]
  - Pain [None]
  - Joint lock [None]
